FAERS Safety Report 10478845 (Version 1)
Quarter: 2014Q3

REPORT INFORMATION
  Report Type: Spontaneous
  Country: US (occurrence: US)
  Receive Date: 20140926
  Receipt Date: 20140926
  Transmission Date: 20150326
  Serious: Yes (Other)
  Sender: FDA-Public Use
  Company Number: US-BAYER-2014-142827

PATIENT
  Age: 78 Year
  Sex: Female

DRUGS (2)
  1. BAYER GENUINE ASPIRIN [Suspect]
     Active Substance: ASPIRIN
     Indication: ANALGESIC THERAPY
     Dosage: 1 DF, QD
  2. ONE A DAY VITACRAVES PLUS IMMUNITY SUPPORT GUMMIES [Suspect]
     Active Substance: MINERALS\VITAMINS

REACTIONS (4)
  - Epistaxis [Recovered/Resolved]
  - Faeces discoloured [Unknown]
  - Therapeutic response changed [Unknown]
  - Haemoptysis [Recovered/Resolved]

NARRATIVE: CASE EVENT DATE: 20140921
